FAERS Safety Report 6171389-0 (Version None)
Quarter: 2009Q2

REPORT INFORMATION
  Report Type: 
  Country: None (occurrence: None)
  Receive Date: 20090427
  Receipt Date: 20090413
  Transmission Date: 20091009
  Serious: Yes (Hospitalization)
  Sender: FDA-Public Use
  Company Number: 006058

PATIENT
  Age: 75 Year
  Sex: Female

DRUGS (8)
  1. PLETAL [Suspect]
     Indication: CEREBRAL ARTERY STENOSIS
     Dosage: 100 MG, BID, ORAL
     Route: 048
     Dates: start: 20090401, end: 20090401
  2. MARZULENE-S (SODIUM AZULENE SULFONATE_L-GLUTAMINE) 0.67 G [Concomitant]
  3. METHYCOBAL (MECOBALAMIN) 0.5 MG [Concomitant]
  4. MEVALOTIN (PRAVASTATIN SODIUM) TABLET, 10 MG [Concomitant]
  5. DIOVAN [Concomitant]
  6. RIZE (CLOTIAZEPAM) TABLET, 5 MG [Concomitant]
  7. GASMOTIN (MOSAPRIDE CITRATE) TABLET, 5 MG [Concomitant]
  8. TAKEPRON (LANSOPRAZOLE) CAPSULE, 15 MG [Concomitant]

REACTIONS (1)
  - STRESS CARDIOMYOPATHY [None]
